FAERS Safety Report 6340560-7 (Version None)
Quarter: 2009Q3

REPORT INFORMATION
  Report Type: 
  Country: None (occurrence: None)
  Receive Date: 20090904
  Receipt Date: 20090826
  Transmission Date: 20100115
  Serious: Yes (Life-Threatening, Hospitalization)
  Sender: FDA-Public Use
  Company Number: DK-JNJFOC-20090900123

PATIENT
  Age: 75 Year
  Sex: Female

DRUGS (7)
  1. TRAMADOL HCL [Suspect]
     Indication: DRUG USE FOR UNKNOWN INDICATION
     Route: 065
  2. BENZODIAZEPINE DERIVATIVES [Suspect]
     Indication: DRUG USE FOR UNKNOWN INDICATION
     Route: 065
  3. WARFARIN SODIUM [Interacting]
     Indication: DRUG USE FOR UNKNOWN INDICATION
     Route: 065
  4. FLUPENTIXOL [Suspect]
     Indication: DRUG USE FOR UNKNOWN INDICATION
     Route: 065
  5. TRICYCLIC ANTIDEPRESSANTS [Suspect]
     Indication: DRUG USE FOR UNKNOWN INDICATION
     Route: 065
  6. FLUMAZENIL [Suspect]
     Indication: RESPIRATORY RATE DECREASED
     Route: 065
  7. NALOXONE [Suspect]
     Indication: RESPIRATORY RATE DECREASED
     Route: 065

REACTIONS (11)
  - ALTERED STATE OF CONSCIOUSNESS [None]
  - CHOREOATHETOSIS [None]
  - DRUG INTERACTION [None]
  - HALLUCINATION [None]
  - INTENTIONAL OVERDOSE [None]
  - INTERNATIONAL NORMALISED RATIO INCREASED [None]
  - METABOLIC ACIDOSIS [None]
  - RESPIRATORY RATE DECREASED [None]
  - SOMNOLENCE [None]
  - STATUS EPILEPTICUS [None]
  - SUICIDE ATTEMPT [None]
